FAERS Safety Report 9312574 (Version 3)
Quarter: 2013Q3

REPORT INFORMATION
  Report Type: Spontaneous
  Country: DE (occurrence: DE)
  Receive Date: 20130528
  Receipt Date: 20130716
  Transmission Date: 20140515
  Serious: Yes (Hospitalization, Other)
  Sender: FDA-Public Use
  Company Number: DE-ABBOTT-13P-062-1095745-00

PATIENT
  Age: 73 Year
  Sex: Male

DRUGS (3)
  1. TRENANTONE [Suspect]
     Indication: PROSTATE CANCER
     Route: 058
     Dates: start: 20111212, end: 20111212
  2. TRENANTONE [Suspect]
     Route: 058
     Dates: start: 20120726, end: 20120726
  3. RIVAROXABAN [Concomitant]
     Indication: PRODUCT USED FOR UNKNOWN INDICATION
     Route: 048

REACTIONS (2)
  - Haemorrhage intracranial [Unknown]
  - Pulmonary embolism [Unknown]
